FAERS Safety Report 5355756-0 (Version None)
Quarter: 2007Q2

REPORT INFORMATION
  Report Type: 
  Country: None (occurrence: None)
  Receive Date: 20070611
  Receipt Date: 20070611
  Transmission Date: 20071010
  Serious: Yes (Other)
  Sender: FDA-Public Use
  Company Number: None

PATIENT
  Age: 37 Year
  Sex: Female
  Weight: 71.6683 kg

DRUGS (1)
  1. MONISTAT [Suspect]
     Indication: FUNGAL INFECTION
     Dosage: VAG
     Route: 067
     Dates: start: 20070610, end: 20070610

REACTIONS (4)
  - APPLICATION SITE REACTION [None]
  - DYSPNOEA [None]
  - VAGINAL BURNING SENSATION [None]
  - VULVOVAGINAL PRURITUS [None]
